FAERS Safety Report 13971840 (Version 1)
Quarter: 2017Q3

REPORT INFORMATION
  Report Type: Spontaneous
  Country: US (occurrence: US)
  Receive Date: 20170914
  Receipt Date: 20170914
  Transmission Date: 20171128
  Serious: Yes (Hospitalization)
  Sender: FDA-Public Use
  Company Number: None

PATIENT
  Age: 47 Year
  Sex: Male
  Weight: 73.35 kg

DRUGS (7)
  1. LISINOPRIL. [Suspect]
     Active Substance: LISINOPRIL
     Indication: HYPERTENSION
     Route: 048
  2. AMLODIPINE [Concomitant]
     Active Substance: AMLODIPINE BESYLATE
  3. PANTOPRAZOLE [Concomitant]
     Active Substance: PANTOPRAZOLE
  4. LIDOCAINE. [Suspect]
     Active Substance: LIDOCAINE
     Indication: ENDOSCOPY
     Route: 058
  5. HYDROCHLORIZIDE [Concomitant]
  6. CETIRIZINE [Concomitant]
     Active Substance: CETIRIZINE HYDROCHLORIDE
  7. GAVAPENTIN [Concomitant]

REACTIONS (6)
  - Dyspnoea [None]
  - Angioedema [None]
  - Rash [None]
  - Pruritus [None]
  - Lip swelling [None]
  - Drug hypersensitivity [None]
